FAERS Safety Report 19955962 (Version 1)
Quarter: 2021Q4

REPORT INFORMATION
  Report Type: Spontaneous
  Country: NL (occurrence: NL)
  Receive Date: 20211014
  Receipt Date: 20211014
  Transmission Date: 20220303
  Serious: Yes (Disabling)
  Sender: FDA-Public Use
  Company Number: None

PATIENT
  Age: 37 Year
  Sex: Female
  Weight: 67 kg

DRUGS (2)
  1. AZITHROMYCIN ANHYDROUS [Suspect]
     Active Substance: AZITHROMYCIN ANHYDROUS
     Indication: Product used for unknown indication
     Dosage: 500 MILLIGRAM, QD (1 MAAL DAAGS 500 MG)
     Dates: start: 20210611
  2. TEGRETOL XR [Concomitant]
     Active Substance: CARBAMAZEPINE
     Dosage: 500 MILLIGRAM, BID (2 MAAL DAAGS 500 MG RETARD)

REACTIONS (1)
  - Generalised tonic-clonic seizure [Recovered/Resolved]

NARRATIVE: CASE EVENT DATE: 20210611
